FAERS Safety Report 21414613 (Version 1)
Quarter: 2022Q4

REPORT INFORMATION
  Report Type: Other
  Country: DE (occurrence: None)
  Receive Date: 20221006
  Receipt Date: 20221006
  Transmission Date: 20230113
  Serious: Yes (Hospitalization)
  Sender: FDA-Public Use
  Company Number: DE-ROCHE-3189691

PATIENT
  Age: 65 Year
  Sex: Male

DRUGS (24)
  1. OCRELIZUMAB [Suspect]
     Active Substance: OCRELIZUMAB
     Indication: Primary progressive multiple sclerosis
     Route: 042
     Dates: start: 20180604, end: 20180618
  2. OCRELIZUMAB [Suspect]
     Active Substance: OCRELIZUMAB
     Route: 042
     Dates: start: 20181203
  3. TAMBOCOR [Concomitant]
     Active Substance: FLECAINIDE ACETATE
     Indication: Arrhythmia
     Route: 048
     Dates: start: 1990
  4. METHYLPREDNISOLONE [Concomitant]
     Active Substance: METHYLPREDNISOLONE
     Indication: Prophylaxis
     Route: 042
     Dates: start: 20210622, end: 20210622
  5. METHYLPREDNISOLONE [Concomitant]
     Active Substance: METHYLPREDNISOLONE
     Route: 042
     Dates: start: 20181203, end: 20181203
  6. METHYLPREDNISOLONE [Concomitant]
     Active Substance: METHYLPREDNISOLONE
     Route: 048
     Dates: start: 20191202, end: 20191202
  7. METHYLPREDNISOLONE [Concomitant]
     Active Substance: METHYLPREDNISOLONE
     Route: 042
     Dates: start: 20201210, end: 20201210
  8. METHYLPREDNISOLONE [Concomitant]
     Active Substance: METHYLPREDNISOLONE
     Route: 048
     Dates: start: 20200525, end: 20200525
  9. METHYLPREDNISOLONE [Concomitant]
     Active Substance: METHYLPREDNISOLONE
     Route: 042
     Dates: start: 20220110, end: 20220110
  10. METHYLPREDNISOLONE [Concomitant]
     Active Substance: METHYLPREDNISOLONE
     Route: 042
     Dates: start: 20180604, end: 20180604
  11. METHYLPREDNISOLONE [Concomitant]
     Active Substance: METHYLPREDNISOLONE
     Route: 042
     Dates: start: 20180604, end: 20180604
  12. METHYLPREDNISOLONE [Concomitant]
     Active Substance: METHYLPREDNISOLONE
     Route: 042
     Dates: start: 20220627, end: 20220627
  13. METHYLPREDNISOLONE [Concomitant]
     Active Substance: METHYLPREDNISOLONE
     Route: 048
     Dates: start: 20190603, end: 20190603
  14. DIMETHINDENE [Concomitant]
     Active Substance: DIMETHINDENE
     Indication: Prophylaxis
     Route: 048
     Dates: start: 20220627, end: 20220627
  15. DIMETHINDENE [Concomitant]
     Active Substance: DIMETHINDENE
     Route: 048
     Dates: start: 20210622, end: 20210622
  16. DIMETHINDENE [Concomitant]
     Active Substance: DIMETHINDENE
     Route: 048
     Dates: start: 20201210, end: 20201210
  17. DIMETHINDENE [Concomitant]
     Active Substance: DIMETHINDENE
     Route: 048
     Dates: start: 20181203, end: 20181203
  18. DIMETHINDENE [Concomitant]
     Active Substance: DIMETHINDENE
     Route: 048
     Dates: start: 20191202, end: 20191202
  19. DIMETHINDENE [Concomitant]
     Active Substance: DIMETHINDENE
     Route: 048
     Dates: start: 20200525, end: 20200525
  20. DIMETHINDENE [Concomitant]
     Active Substance: DIMETHINDENE
     Route: 048
     Dates: start: 20180618, end: 20180618
  21. DIMETHINDENE [Concomitant]
     Active Substance: DIMETHINDENE
     Route: 048
     Dates: start: 20220110, end: 20220110
  22. DIMETHINDENE [Concomitant]
     Active Substance: DIMETHINDENE
     Route: 048
     Dates: start: 20190603, end: 20190603
  23. DIMETHINDENE [Concomitant]
     Active Substance: DIMETHINDENE
     Route: 048
     Dates: start: 20180604, end: 20180604
  24. LISINOPRIL [Concomitant]
     Active Substance: LISINOPRIL
     Indication: Hypertension
     Route: 048
     Dates: start: 201705

REACTIONS (1)
  - Erysipelas [Not Recovered/Not Resolved]

NARRATIVE: CASE EVENT DATE: 20220901
